FAERS Safety Report 25478046 (Version 1)
Quarter: 2025Q2

REPORT INFORMATION
  Report Type: Spontaneous
  Country: SK (occurrence: SK)
  Receive Date: 20250625
  Receipt Date: 20250625
  Transmission Date: 20250717
  Serious: Yes (Other)
  Sender: REGENERON
  Company Number: SK-BAYER-2025A083647

PATIENT
  Age: 87 Year
  Sex: Female

DRUGS (5)
  1. EYLEA HD [Suspect]
     Active Substance: AFLIBERCEPT
     Indication: Neovascular age-related macular degeneration
     Route: 031
     Dates: start: 20250116, end: 20250116
  2. EYLEA HD [Suspect]
     Active Substance: AFLIBERCEPT
     Indication: Dry age-related macular degeneration
     Route: 031
     Dates: start: 20250314, end: 20250314
  3. EYLEA HD [Suspect]
     Active Substance: AFLIBERCEPT
     Indication: Cataract
     Route: 031
     Dates: start: 20250512, end: 20250512
  4. EYLEA HD [Suspect]
     Active Substance: AFLIBERCEPT
     Indication: Hypermetropia
  5. EYLEA HD [Suspect]
     Active Substance: AFLIBERCEPT
     Indication: Presbyopia

REACTIONS (1)
  - Blood pressure decreased [Unknown]
